FAERS Safety Report 4973486-1 (Version None)
Quarter: 2006Q2

REPORT INFORMATION
  Report Type: 
  Country: None (occurrence: None)
  Receive Date: 20060407
  Receipt Date: 20060329
  Transmission Date: 20061013
  Serious: Yes (Hospitalization)
  Sender: FDA-Public Use
  Company Number: HQWYE580329MAR06

PATIENT
  Age: 69 Year
  Sex: Female
  Weight: 69.83 kg

DRUGS (3)
  1. PROTONIX [Suspect]
     Indication: GASTRIC ULCER
     Dosage: 40 MG 1X PER 1 DAY, ORAL
     Route: 048
     Dates: start: 20050719
  2. DEXAMETHASONE [Suspect]
     Indication: PAIN
     Dosage: 4 MG 3X PER 1 DAY, ORAL
     Route: 048
     Dates: start: 20060110
  3. SULINDAC [Suspect]
     Indication: OSTEOARTHRITIS
     Dosage: 200 MG 2X PER 1 DAY, ORAL
     Route: 048
     Dates: start: 20040501

REACTIONS (5)
  - HAEMATEMESIS [None]
  - MALLORY-WEISS SYNDROME [None]
  - NAUSEA [None]
  - REFLUX OESOPHAGITIS [None]
  - VOMITING [None]
